FAERS Safety Report 16659334 (Version 1)
Quarter: 2019Q3

REPORT INFORMATION
  Report Type: Spontaneous
  Country: ZA (occurrence: ZA)
  Receive Date: 20190802
  Receipt Date: 20190802
  Transmission Date: 20191004
  Serious: Yes (Other)
  Sender: FDA-Public Use
  Company Number: ZA-HETERO-HET2019ZA01039

PATIENT
  Sex: Male
  Weight: 1.4 kg

DRUGS (1)
  1. NEVIRAPINE. [Suspect]
     Active Substance: NEVIRAPINE
     Indication: PROPHYLAXIS
     Dosage: UNK
     Route: 065

REACTIONS (3)
  - Acute HIV infection [Unknown]
  - Exposure via breast milk [Unknown]
  - Off label use [Unknown]
